FAERS Safety Report 18637565 (Version 1)
Quarter: 2020Q4

REPORT INFORMATION
  Report Type: Spontaneous
  Country: US (occurrence: US)
  Receive Date: 20201218
  Receipt Date: 20201218
  Transmission Date: 20210114
  Serious: No
  Sender: FDA-Public Use
  Company Number: US-ENDO PHARMACEUTICALS INC-2020-003415

PATIENT
  Sex: Male
  Weight: 99.77 kg

DRUGS (4)
  1. XIAFLEX [Suspect]
     Active Substance: COLLAGENASE CLOSTRIDIUM HISTOLYTICUM
     Dosage: UNK UNKNOWN, UNKNOWN; CYCLE TWO, INJECITON ONE AND TWO
     Route: 026
     Dates: start: 2020
  2. FINASTERIDE. [Concomitant]
     Active Substance: FINASTERIDE
     Indication: ALOPECIA
  3. XIAFLEX [Suspect]
     Active Substance: COLLAGENASE CLOSTRIDIUM HISTOLYTICUM
     Dosage: UNK UNKNOWN, UNKNOWN; CYCLE ONE, INJECTION ONE AND TWO
     Route: 026
     Dates: start: 2020
  4. XIAFLEX [Suspect]
     Active Substance: COLLAGENASE CLOSTRIDIUM HISTOLYTICUM
     Indication: PEYRONIE^S DISEASE
     Dosage: UNK UNKNOWN, UNKNOWN; CYCLE THREE, INJECITONS  ONE NAD TWO
     Route: 026
     Dates: start: 2020

REACTIONS (5)
  - Penile contusion [Recovered/Resolved]
  - Penile pain [Unknown]
  - Erectile dysfunction [Unknown]
  - Penile size reduced [Unknown]
  - Penis disorder [Unknown]

NARRATIVE: CASE EVENT DATE: 2020
